FAERS Safety Report 7796939-X (Version None)
Quarter: 2011Q4

REPORT INFORMATION
  Report Type: 
  Country: None (occurrence: None)
  Receive Date: 20111005
  Receipt Date: 20110926
  Transmission Date: 20120403
  Serious: Yes (Hospitalization)
  Sender: FDA-Public Use
  Company Number: JP-AMGEN-JPNCT2011006182

PATIENT
  Age: 58 Year
  Sex: Male
  Weight: 55 kg

DRUGS (17)
  1. FERROUS SULFATE TAB [Concomitant]
     Dosage: UNK
     Route: 048
  2. ANTIHISTAMINES [Concomitant]
     Indication: PROPHYLAXIS
     Route: 065
  3. LEVOLEUCOVORIN CALCIUM [Concomitant]
     Indication: COLORECTAL CANCER
     Route: 041
     Dates: start: 20101102
  4. RIBOVIX [Concomitant]
     Dosage: UNK
     Route: 048
  5. PANITUMUMAB [Suspect]
     Indication: COLORECTAL CANCER
     Dosage: 6 MG/KG, Q2WK
     Route: 041
     Dates: start: 20101102, end: 20101102
  6. LOXONIN [Concomitant]
     Dosage: UNK
     Route: 048
  7. POSTERISAN FORTE [Concomitant]
     Dosage: UNK
     Route: 062
  8. CORTICOSTEROIDS [Concomitant]
     Indication: PROPHYLAXIS
     Dosage: UNK
     Route: 065
  9. DIOVAN [Concomitant]
     Dosage: UNK
     Route: 048
  10. FLUOROURACIL [Concomitant]
     Indication: COLORECTAL CANCER
     Dosage: 650 MG, UNK
     Route: 040
     Dates: start: 20101102
  11. PANITUMUMAB [Suspect]
     Dosage: 6 MG/KG, Q2WK
     Route: 041
     Dates: start: 20101130, end: 20110621
  12. PANITUMUMAB [Suspect]
     Dosage: 6 MG/KG, Q2WK
     Route: 041
     Dates: start: 20110719, end: 20110719
  13. NORVASC [Concomitant]
     Dosage: UNK
     Route: 048
  14. PANITUMUMAB [Suspect]
     Dosage: 4.8 MG/KG, Q2WK
     Route: 041
     Dates: start: 20110817, end: 20110817
  15. FLUOROURACIL [Concomitant]
     Route: 041
     Dates: start: 20101102
  16. NERIPROCT [Concomitant]
     Dosage: UNK
     Route: 054
  17. IRINOTECAN HCL [Concomitant]
     Indication: COLORECTAL CANCER
     Dosage: 140 MG, Q2WK
     Route: 041
     Dates: start: 20101102

REACTIONS (2)
  - FEBRILE NEUTROPENIA [None]
  - STOMATITIS [None]
